FAERS Safety Report 9582215 (Version 1)
Quarter: 2013Q4

REPORT INFORMATION
  Report Type: Spontaneous
  Country: US (occurrence: US)
  Receive Date: 20131002
  Receipt Date: 20131002
  Transmission Date: 20140711
  Serious: No
  Sender: FDA-Public Use
  Company Number: US-AMGEN-USASP2013039046

PATIENT
  Age: 60 Year
  Sex: Female
  Weight: 69.84 kg

DRUGS (22)
  1. ENBREL [Suspect]
     Indication: PRODUCT USED FOR UNKNOWN INDICATION
     Dosage: 50 MG, QWK
     Route: 058
  2. LEFLUNOMIDE [Concomitant]
     Dosage: 20 MG, UNK
  3. FOLIC ACID [Concomitant]
     Dosage: 1 MG, UNK
  4. METHOTREXATE [Concomitant]
     Dosage: 2.5 MG, UNK
  5. HYDROXYCHLOROQUINE [Concomitant]
     Dosage: 200 MG, UNK
  6. RESTASIS [Concomitant]
     Dosage: 0.05 %, UNK
  7. VAGIFEM [Concomitant]
     Dosage: 10 MUG, UNK
  8. OMEPRAZOLE [Concomitant]
     Dosage: 10 MG, UNK
  9. NASONEX [Concomitant]
     Dosage: 50 MCG/AC
  10. ALBUTEROL                          /00139501/ [Concomitant]
     Dosage: 90 MUG, UNK
  11. PREVIDENT [Concomitant]
     Dosage: 5000 PLS, UNK
  12. FISH OIL [Concomitant]
     Dosage: UNK
  13. SENIOR [Concomitant]
     Dosage: UNK
  14. VITAMIN C                          /00008001/ [Concomitant]
     Dosage: 500 MG, UNK
  15. VITAMIN D                          /00107901/ [Concomitant]
     Dosage: 1000 UNIT, UNK
  16. MAGNESIUM [Concomitant]
     Dosage: 400 MG, UNK
  17. CALCIUM CITRATE [Concomitant]
     Dosage: 200 MG, UNK
  18. BIOTIN [Concomitant]
     Dosage: 5000 UNK, UNK
  19. GLUCOSAM + CHONDROITIN COMPLEX [Concomitant]
     Dosage: UNK
  20. MIRALAX                            /00754501/ [Concomitant]
     Dosage: 3350 NF. UNK
  21. TUMS                               /00193601/ [Concomitant]
     Dosage: 500 MG, UNK
  22. EYE DROPS                          /00256502/ [Concomitant]
     Dosage: UNK

REACTIONS (1)
  - Dizziness [Unknown]
